FAERS Safety Report 5374326-1 (Version None)
Quarter: 2007Q2

REPORT INFORMATION
  Report Type: 
  Country: None (occurrence: None)
  Receive Date: 20070629
  Receipt Date: 20070621
  Transmission Date: 20071010
  Serious: Yes (Hospitalization)
  Sender: FDA-Public Use
  Company Number: PHHO2006US01900

PATIENT
  Age: 43 Year
  Sex: Male
  Weight: 81.1 kg

DRUGS (16)
  1. RAD001A [Suspect]
     Indication: RENAL TRANSPLANT
     Dosage: 1.5 MG, BID
     Route: 048
     Dates: start: 20060131
  2. RAD001A [Suspect]
     Dosage: 1.5 MG, BID
     Route: 048
     Dates: start: 20040930
  3. NEORAL [Suspect]
     Indication: RENAL TRANSPLANT
     Dosage: 100 MG, BID
     Route: 048
     Dates: start: 20050602
  4. NEORAL [Suspect]
     Dosage: 100 MG, BID
     Route: 048
     Dates: start: 20060129
  5. PREDNISONE [Suspect]
     Indication: RENAL TRANSPLANT
     Dosage: 10MG/DAY
     Route: 048
     Dates: start: 20050603
  6. ATENOLOL [Concomitant]
  7. CLONIDINE [Concomitant]
  8. FUROSEMIDE [Concomitant]
  9. MINOXIDIL [Concomitant]
  10. VASOTEC [Concomitant]
  11. BACTRIM [Concomitant]
  12. COLACE [Concomitant]
  13. POTASSIUM CHLORIDE [Concomitant]
  14. ASPIRIN [Concomitant]
  15. TYLENOL [Concomitant]
  16. CADUET [Concomitant]

REACTIONS (10)
  - AMNESIA [None]
  - ANXIETY [None]
  - CONFUSIONAL STATE [None]
  - CONVULSION [None]
  - GASTROENTERITIS [None]
  - HYPERTENSION [None]
  - LUMBAR PUNCTURE [None]
  - NAUSEA [None]
  - PYREXIA [None]
  - VOMITING [None]
